FAERS Safety Report 10456787 (Version 1)
Quarter: 2014Q3

REPORT INFORMATION
  Report Type: Spontaneous
  Country: DE (occurrence: DE)
  Receive Date: 20140916
  Receipt Date: 20140916
  Transmission Date: 20150326
  Serious: Yes (Other)
  Sender: FDA-Public Use
  Company Number: DE-TAKEDA-2014TEU007906

PATIENT
  Age: 61 Year
  Sex: Male

DRUGS (4)
  1. ROFECOXIB [Concomitant]
     Active Substance: ROFECOXIB
     Indication: PROSTATE CANCER
     Dosage: 25 MG, QD
  2. PIOGLITAZONE [Suspect]
     Active Substance: PIOGLITAZONE
     Indication: PROSTATE CANCER
     Dosage: 60 MG, QD
     Route: 065
  3. CAPECITABINE [Concomitant]
     Active Substance: CAPECITABINE
     Indication: PROSTATE CANCER
     Dosage: (TWO DOSES OF 1 G/M2 PER DAY FOR DAYS 1-14 REPEATED EVERY 3 WEEKS)
  4. TROFOSFAMIDE [Concomitant]
     Active Substance: TROFOSFAMIDE
     Dosage: 50 MG, TID

REACTIONS (1)
  - Anaemia [Unknown]
